FAERS Safety Report 21571909 (Version 1)
Quarter: 2022Q4

REPORT INFORMATION
  Report Type: Spontaneous
  Country: US (occurrence: None)
  Receive Date: 20221108
  Receipt Date: 20221108
  Transmission Date: 20230112
  Serious: Yes (Hospitalization)
  Sender: FDA-Public Use
  Company Number: None

PATIENT
  Sex: Male
  Weight: 91.58 kg

DRUGS (1)
  1. CISPLATIN [Suspect]
     Active Substance: CISPLATIN

REACTIONS (4)
  - Neutrophil count decreased [None]
  - Haemoglobin decreased [None]
  - Laboratory test abnormal [None]
  - Pyrexia [None]

NARRATIVE: CASE EVENT DATE: 20200810
